FAERS Safety Report 7599766-1 (Version None)
Quarter: 2011Q3

REPORT INFORMATION
  Report Type: 
  Country: None (occurrence: None)
  Receive Date: 20110711
  Receipt Date: 20110630
  Transmission Date: 20111222
  Serious: Yes (Other)
  Sender: FDA-Public Use
  Company Number: US-BAYER-2011-057028

PATIENT
  Age: 39 Year
  Sex: Female

DRUGS (1)
  1. MIRENA [Suspect]
     Indication: ENDOMETRIAL ABLATION
     Dosage: 20 MCG/D
     Dates: start: 20110601

REACTIONS (5)
  - VAGINAL HAEMORRHAGE [None]
  - WEIGHT INCREASED [None]
  - BREAST PAIN [None]
  - ABDOMINAL DISTENSION [None]
  - PROCEDURAL PAIN [None]
